FAERS Safety Report 6300941-4 (Version None)
Quarter: 2009Q3

REPORT INFORMATION
  Report Type: 
  Country: None (occurrence: None)
  Receive Date: 20090807
  Receipt Date: 20070618
  Transmission Date: 20100115
  Serious: Yes (Hospitalization, Other)
  Sender: FDA-Public Use
  Company Number: US-ASTRAZENECA-2006UW07963

PATIENT
  Age: 38 Year
  Sex: Female
  Weight: 96.2 kg

DRUGS (16)
  1. SEROQUEL [Suspect]
     Indication: DEPRESSION
     Route: 048
     Dates: start: 20040201, end: 20060101
  2. SEROQUEL [Suspect]
     Dosage: 200 - 300 MG
     Route: 048
     Dates: start: 20050713
  3. ZYPREXA [Concomitant]
     Dates: start: 20050101
  4. ZYPREXA [Concomitant]
     Dosage: 5 MG TABLET DISPENSED
     Route: 048
     Dates: start: 20050504
  5. DARVOCET [Concomitant]
     Route: 048
     Dates: start: 20050901
  6. ZOCOR [Concomitant]
     Indication: HYPERLIPIDAEMIA
     Route: 048
     Dates: start: 20050225
  7. COZAAR [Concomitant]
     Dosage: 50 MG TABLET DISPENSED
     Route: 048
     Dates: start: 20050225
  8. PLAVIX [Concomitant]
     Route: 048
     Dates: start: 20070723
  9. ASPIRIN [Concomitant]
     Route: 048
     Dates: start: 20070723
  10. COREG [Concomitant]
     Route: 048
     Dates: start: 20070723
  11. ALTACE [Concomitant]
     Route: 048
     Dates: start: 20070723
  12. LORTAB [Concomitant]
     Route: 048
     Dates: start: 20020524
  13. MELOXICAM [Concomitant]
     Route: 048
     Dates: start: 20070723
  14. LISINOPRIL [Concomitant]
     Route: 048
     Dates: start: 20070723
  15. PRAVASTATIN SODIUM [Concomitant]
     Route: 048
     Dates: start: 20070723
  16. CLONAZEPAM [Concomitant]
     Dosage: 0.5 MG TABLET DISPENSED
     Route: 048
     Dates: start: 20050523

REACTIONS (12)
  - BLOOD CHOLESTEROL INCREASED [None]
  - BLOOD TRIGLYCERIDES INCREASED [None]
  - DIABETES MELLITUS [None]
  - DIABETES MELLITUS INADEQUATE CONTROL [None]
  - HYPERGLYCAEMIA [None]
  - HYPERTENSION [None]
  - INTERVERTEBRAL DISC DEGENERATION [None]
  - MULTIPLE INJURIES [None]
  - MYOCARDIAL ISCHAEMIA [None]
  - SPINAL OSTEOARTHRITIS [None]
  - STENT PLACEMENT [None]
  - TYPE 2 DIABETES MELLITUS [None]
